FAERS Safety Report 19745546 (Version 3)
Quarter: 2022Q1

REPORT INFORMATION
  Report Type: Spontaneous
  Country: US (occurrence: US)
  Receive Date: 20210825
  Receipt Date: 20220110
  Transmission Date: 20220423
  Serious: Yes (Other)
  Sender: FDA-Public Use
  Company Number: US-PFIZER INC-202101059253

PATIENT
  Age: 43 Year
  Sex: Male

DRUGS (1)
  1. XELJANZ [Suspect]
     Active Substance: TOFACITINIB CITRATE
     Indication: Colitis ulcerative
     Dosage: 10 MG, 2X/DAY

REACTIONS (3)
  - Drug ineffective [Unknown]
  - Inflammatory bowel disease [Not Recovered/Not Resolved]
  - Arthralgia [Unknown]
